FAERS Safety Report 4501760-1 (Version None)
Quarter: 2004Q4

REPORT INFORMATION
  Report Type: 
  Country: None (occurrence: None)
  Receive Date: 20040928
  Receipt Date: 20040823
  Transmission Date: 20050328
  Serious: No
  Sender: FDA-Public Use
  Company Number: 03P-163-0219423-00

PATIENT
  Age: 61 Year
  Sex: Female
  Weight: 61.2356 kg

DRUGS (6)
  1. HUMIRA [Suspect]
     Indication: RHEUMATOID ARTHRITIS
     Dosage: 40 MG, 1 IN 2 WK, SUBCUTANEOUS
     Route: 058
     Dates: start: 20030201, end: 20040823
  2. VENLAFAXINE HYDROCHLORIDE [Concomitant]
  3. CLORAZEPAM [Concomitant]
  4. METHOTREXATE [Concomitant]
  5. PROPACET 100 [Concomitant]
  6. PARACETAMOL [Concomitant]

REACTIONS (6)
  - ARTHRALGIA [None]
  - BACK PAIN [None]
  - DRUG INEFFECTIVE [None]
  - PAIN [None]
  - PYREXIA [None]
  - URINARY TRACT INFECTION [None]
